FAERS Safety Report 7655671-3 (Version None)
Quarter: 2011Q3

REPORT INFORMATION
  Report Type: 
  Country: None (occurrence: None)
  Receive Date: 20110804
  Receipt Date: 20110728
  Transmission Date: 20111222
  Serious: Yes (Hospitalization, Other)
  Sender: FDA-Public Use
  Company Number: FR-PFIZER INC-2011177111

PATIENT
  Age: 77 Year
  Sex: Male

DRUGS (7)
  1. SPASFON [Concomitant]
     Indication: PAIN
     Dosage: 2 DF, TID IF PAIN
  2. CORDARONE [Suspect]
     Indication: ATRIAL FIBRILLATION
     Dosage: 1 DF, 5 DAYS PER WEEK
     Route: 048
     Dates: end: 20110517
  3. TRACLEER [Suspect]
     Indication: PULMONARY ARTERIAL HYPERTENSION
     Dosage: 125 MG, 2X/DAY
     Route: 048
     Dates: end: 20110505
  4. IMOVANE [Concomitant]
     Dosage: 1 DF, DAILY IN THE BEDTIME
     Dates: start: 20110126
  5. HAVLANE [Concomitant]
     Dosage: 1 DF IF AWAKING DURING THE NIGHT
  6. DOMPERIDONE [Concomitant]
     Dosage: 1 DF IN THE MIDDAY
  7. NEXIUM [Suspect]
     Indication: ATRIAL FIBRILLATION
     Dosage: 20 MG, UNK
     Route: 048
     Dates: end: 20110517

REACTIONS (1)
  - JAUNDICE CHOLESTATIC [None]
